FAERS Safety Report 6589893-X (Version None)
Quarter: 2010Q1

REPORT INFORMATION
  Report Type: 
  Country: None (occurrence: None)
  Receive Date: 20100219
  Receipt Date: 20100210
  Transmission Date: 20100710
  Serious: Yes (Other)
  Sender: FDA-Public Use
  Company Number: JP-JNJFOC-20100106412

PATIENT
  Age: 57 Year
  Sex: Male

DRUGS (6)
  1. RISPERDAL [Suspect]
     Indication: SCHIZOPHRENIA
     Route: 048
  2. VALPROATE SODIUM [Suspect]
     Indication: EPILEPSY
     Route: 048
  3. AKINETON [Suspect]
     Indication: PROPHYLAXIS
     Route: 048
  4. TETRAMIDE [Suspect]
     Indication: DELIRIUM
     Route: 048
  5. VEGETAMIN [Suspect]
     Indication: SEDATION
     Dosage: DOSE: 1 DF
     Route: 048
  6. SENNA EXTRACT [Suspect]
     Indication: CONSTIPATION
     Dosage: DOSE: 2 DF
     Route: 048

REACTIONS (2)
  - HYPOGLYCAEMIA [None]
  - HYPONATRAEMIA [None]
